FAERS Safety Report 22289617 (Version 1)
Quarter: 2023Q2

REPORT INFORMATION
  Report Type: Spontaneous
  Country: AU (occurrence: None)
  Receive Date: 20230505
  Receipt Date: 20230505
  Transmission Date: 20230722
  Serious: Yes (Other)
  Sender: FDA-Public Use
  Company Number: 2023A098628

PATIENT
  Age: 75 Year
  Sex: Female

DRUGS (1)
  1. TICAGRELOR [Suspect]
     Active Substance: TICAGRELOR
     Route: 048

REACTIONS (3)
  - Renal failure [Unknown]
  - Rhabdomyolysis [Unknown]
  - Drug interaction [Unknown]
